FAERS Safety Report 11074162 (Version 2)
Quarter: 2015Q2

REPORT INFORMATION
  Report Type: Spontaneous
  Country: US (occurrence: None)
  Receive Date: 20150427
  Receipt Date: 20150501
  Transmission Date: 20150821
  Serious: Yes (Death, Other)
  Sender: FDA-Public Use
  Company Number: ADR-2015-00801

PATIENT
  Age: 50 Year
  Sex: Male

DRUGS (1)
  1. LIORESAL [Suspect]
     Active Substance: BACLOFEN
     Indication: MUSCLE SPASTICITY
     Dosage: 84MCG/DAY

REACTIONS (4)
  - Multiple sclerosis [None]
  - Disease complication [None]
  - Urosepsis [None]
  - Urinary tract infection [None]

NARRATIVE: CASE EVENT DATE: 20150315
